FAERS Safety Report 7053682-2 (Version None)
Quarter: 2010Q4

REPORT INFORMATION
  Report Type: 
  Country: None (occurrence: None)
  Receive Date: 20101020
  Receipt Date: 20101012
  Transmission Date: 20110411
  Serious: Yes (Hospitalization, Other)
  Sender: FDA-Public Use
  Company Number: A0652875A

PATIENT
  Age: 61 Year
  Sex: Male
  Weight: 176.4 kg

DRUGS (9)
  1. AVANDIA [Suspect]
     Dosage: 8MG PER DAY
     Route: 048
     Dates: start: 19990101, end: 20070101
  2. METFORMIN HCL [Concomitant]
  3. LIPITOR [Concomitant]
  4. WARFARIN [Concomitant]
  5. GLIPIZIDE [Concomitant]
  6. PROTONIX [Concomitant]
  7. FLUOXETINE [Concomitant]
  8. LISINOPRIL [Concomitant]
  9. CHLORAZEPATE [Concomitant]

REACTIONS (5)
  - CARDIAC DISORDER [None]
  - CARDIAC FAILURE CONGESTIVE [None]
  - CARDIAC HYPERTROPHY [None]
  - PULMONARY EMBOLISM [None]
  - THROMBOSIS [None]
